FAERS Safety Report 6122611-8 (Version None)
Quarter: 2009Q1

REPORT INFORMATION
  Report Type: 
  Country: None (occurrence: None)
  Receive Date: 20090318
  Receipt Date: 20090309
  Transmission Date: 20090719
  Serious: Yes (Hospitalization)
  Sender: FDA-Public Use
  Company Number: CH-WYE-G03284309

PATIENT
  Age: 68 Year
  Sex: Male

DRUGS (11)
  1. EFFEXOR [Interacting]
     Indication: DEPRESSION
     Route: 048
  2. VOTUM [Concomitant]
  3. AKINETON [Suspect]
     Route: 048
     Dates: start: 20080315, end: 20080328
  4. LORAZEPAM [Concomitant]
     Route: 048
     Dates: start: 20080315, end: 20080402
  5. LORAZEPAM [Concomitant]
     Route: 048
     Dates: start: 20080403, end: 20080409
  6. LORAZEPAM [Concomitant]
     Route: 048
     Dates: start: 20080410, end: 20080410
  7. LORAZEPAM [Concomitant]
     Route: 048
     Dates: start: 20080411, end: 20080413
  8. LORAZEPAM [Concomitant]
     Route: 048
     Dates: start: 20080414, end: 20080415
  9. LORAZEPAM [Concomitant]
     Route: 048
     Dates: start: 20080416, end: 20080417
  10. ZYPREXA [Suspect]
     Route: 048
  11. ENTUMIN [Interacting]
     Route: 048
     Dates: start: 20080315, end: 20080402

REACTIONS (3)
  - AGITATED DEPRESSION [None]
  - DRUG INTERACTION [None]
  - SINUS TACHYCARDIA [None]
